FAERS Safety Report 9912897 (Version 1)
Quarter: 2014Q1

REPORT INFORMATION
  Report Type: Spontaneous
  Country: FR (occurrence: None)
  Receive Date: 20140214
  Receipt Date: 20140214
  Transmission Date: 20141002
  Serious: Yes (Disabling)
  Sender: FDA-Public Use
  Company Number: 2014CP000023

PATIENT
  Age: 49 Year
  Sex: Female

DRUGS (5)
  1. PERFALGAN (PARACETAMOL) [Suspect]
     Route: 042
     Dates: start: 20130410, end: 20130411
  2. CIPROFLOXACIN (CIPROFLOXACIN) [Suspect]
     Route: 042
     Dates: start: 20130410, end: 20130419
  3. ORBENINE [Suspect]
     Route: 042
     Dates: start: 20130410, end: 20130419
  4. ESOMEPRAZOLE (ESOMEPRAZOLE) [Suspect]
     Route: 048
     Dates: start: 20130410, end: 20130421
  5. CONTRAMAL [Concomitant]

REACTIONS (1)
  - Tendon rupture [None]
